FAERS Safety Report 7822041 (Version 3)
Quarter: 2013Q4

REPORT INFORMATION
  Report Type: Spontaneous
  Country: US (occurrence: US)
  Receive Date: 20110222
  Receipt Date: 20131231
  Transmission Date: 20140711
  Serious: Yes (Other)
  Sender: FDA-Public Use
  Company Number: US-ROCHE-736897

PATIENT
  Age: 45 Year
  Sex: Male
  Weight: 68 kg

DRUGS (1)
  1. ACCUTANE [Suspect]
     Indication: ACNE
     Route: 065
     Dates: start: 198206, end: 198306

REACTIONS (8)
  - Colitis ulcerative [Not Recovered/Not Resolved]
  - Crohn^s disease [Unknown]
  - Gastrointestinal injury [Unknown]
  - Colon cancer [Unknown]
  - Inflammatory bowel disease [Not Recovered/Not Resolved]
  - Anaemia [Unknown]
  - Arthralgia [Unknown]
  - Haemorrhoids [Unknown]
